FAERS Safety Report 21844674 (Version 1)
Quarter: 2023Q1

REPORT INFORMATION
  Report Type: Spontaneous
  Country: US (occurrence: None)
  Receive Date: 20230110
  Receipt Date: 20230110
  Transmission Date: 20230418
  Serious: No
  Sender: FDA-Public Use
  Company Number: None

PATIENT
  Age: 69 Year
  Sex: Male
  Weight: 85.5 kg

DRUGS (1)
  1. LANTUS SOLOSTAR [Suspect]
     Active Substance: INSULIN GLARGINE
     Indication: Diabetes mellitus
     Dosage: OTHER QUANTITY : 34 UNITS;?FREQUENCY : DAILY;?
     Route: 058
     Dates: start: 20220829

REACTIONS (2)
  - Device malfunction [None]
  - Blood glucose increased [None]

NARRATIVE: CASE EVENT DATE: 20230110
